FAERS Safety Report 24293793 (Version 2)
Quarter: 2024Q3

REPORT INFORMATION
  Report Type: Spontaneous
  Country: JP (occurrence: JP)
  Receive Date: 20240906
  Receipt Date: 20240920
  Transmission Date: 20241017
  Serious: Yes (Death, Hospitalization)
  Sender: BAYER
  Company Number: JP-BAYER-2024A127895

PATIENT
  Age: 89 Year
  Sex: Male

DRUGS (3)
  1. XOFIGO [Suspect]
     Active Substance: RADIUM RA-223 DICHLORIDE
     Indication: Hormone-refractory prostate cancer
     Dosage: DAILY DOSE 55 KBQ/KG
     Dates: start: 20240719
  2. DECADRON [Concomitant]
     Active Substance: DEXAMETHASONE
     Indication: Hormone-refractory prostate cancer
     Dosage: 1 MG, BID
     Dates: start: 20240709
  3. CALCIUM CARBONATE\CHOLECALCIFEROL\MAGNESIUM CARBONATE [Concomitant]
     Active Substance: CALCIUM CARBONATE\CHOLECALCIFEROL\MAGNESIUM CARBONATE
     Indication: Hormone-refractory prostate cancer
     Dosage: 2 DF, QD
     Dates: start: 20240712

REACTIONS (5)
  - COVID-19 [Fatal]
  - COVID-19 pneumonia [None]
  - Dyspnoea [None]
  - Malaise [None]
  - Oxygen saturation decreased [None]

NARRATIVE: CASE EVENT DATE: 20240811
